FAERS Safety Report 15064907 (Version 1)
Quarter: 2018Q2

REPORT INFORMATION
  Report Type: Report from Study
  Country: IT (occurrence: IT)
  Receive Date: 20180626
  Receipt Date: 20180626
  Transmission Date: 20180711
  Serious: Yes (Hospitalization)
  Sender: FDA-Public Use
  Company Number: IT-ROCHE-2142397

PATIENT
  Age: 52 Year
  Sex: Female

DRUGS (4)
  1. ARMODAFINIL. [Interacting]
     Active Substance: ARMODAFINIL
     Indication: PRODUCT USED FOR UNKNOWN INDICATION
     Route: 065
  2. CLONAZEPAM. [Suspect]
     Active Substance: CLONAZEPAM
     Indication: PRODUCT USED FOR UNKNOWN INDICATION
     Route: 065
  3. INFLUENZA VACCINE [Interacting]
     Active Substance: INFLUENZA VIRUS VACCINE
     Indication: IMMUNISATION
     Route: 065
  4. CARBAMAZEPINE. [Interacting]
     Active Substance: CARBAMAZEPINE
     Indication: PRODUCT USED FOR UNKNOWN INDICATION
     Route: 065

REACTIONS (26)
  - Headache [Unknown]
  - Eye irritation [Unknown]
  - Aphasia [Unknown]
  - Memory impairment [Unknown]
  - Neurological symptom [Unknown]
  - Dry eye [Unknown]
  - Eye discharge [Unknown]
  - Gaze palsy [Unknown]
  - Tremor [Unknown]
  - Vision blurred [Unknown]
  - Sneezing [Unknown]
  - Pyrexia [Unknown]
  - Erythema [Unknown]
  - Photophobia [Unknown]
  - Hemiparesis [Unknown]
  - Asthenia [Unknown]
  - Drug interaction [Unknown]
  - Loss of personal independence in daily activities [Unknown]
  - Toxicity to various agents [Unknown]
  - Facial paralysis [Unknown]
  - Decreased activity [Unknown]
  - Fatigue [Unknown]
  - Impaired driving ability [Unknown]
  - Bronchitis [Unknown]
  - Vitamin D deficiency [Unknown]
  - Sensorimotor disorder [Unknown]
